FAERS Safety Report 6053899-X (Version None)
Quarter: 2009Q1

REPORT INFORMATION
  Report Type: 
  Country: None (occurrence: None)
  Receive Date: 20090123
  Receipt Date: 20090119
  Transmission Date: 20090719
  Serious: Yes (Life-Threatening, Hospitalization)
  Sender: FDA-Public Use
  Company Number: 2009-00219

PATIENT
  Age: 67 Year
  Sex: Male
  Weight: 98 kg

DRUGS (14)
  1. VELCADE [Suspect]
     Indication: MULTIPLE MYELOMA
     Dosage: 2.6 MG, INTRAVENOUS,
     Route: 042
     Dates: start: 20080317, end: 20081103
  2. VELCADE [Suspect]
     Indication: MULTIPLE MYELOMA
     Dosage: 2.6 MG, INTRAVENOUS,
     Route: 042
     Dates: start: 20081104
  3. THALIDOMIDE [Suspect]
     Indication: MULTIPLE MYELOMA
     Dosage: 50 MG, ORAL
     Route: 048
     Dates: start: 20080317, end: 20081101
  4. THALIDOMIDE [Suspect]
     Indication: MULTIPLE MYELOMA
     Dosage: 50 MG, ORAL
     Route: 048
     Dates: start: 20081104
  5. DEXAMETHASONE TAB [Suspect]
     Indication: MULTIPLE MYELOMA
     Dosage: ORAL
     Route: 048
     Dates: start: 20080317, end: 20081103
  6. DEXAMETHASONE TAB [Suspect]
     Indication: MULTIPLE MYELOMA
     Dosage: ORAL
     Route: 048
     Dates: start: 20081104
  7. SULFAMETHOXAZOLE AND TRIMETHOPRIM [Concomitant]
  8. FOLIC ACID [Concomitant]
  9. LERCANIDIPINE [Concomitant]
  10. AMIODARONE HCL [Concomitant]
  11. PRAZOSIN GITS [Concomitant]
  12. VALSARTAN [Concomitant]
  13. ATENOLOL [Concomitant]
  14. ACETAMINOPHEN [Concomitant]

REACTIONS (4)
  - CARDIAC FAILURE [None]
  - FEBRILE NEUTROPENIA [None]
  - LOBAR PNEUMONIA [None]
  - SEPSIS SYNDROME [None]
